FAERS Safety Report 9214054 (Version 5)
Quarter: 2013Q4

REPORT INFORMATION
  Report Type: Spontaneous
  Country: US (occurrence: US)
  Receive Date: 20130405
  Receipt Date: 20131023
  Transmission Date: 20140711
  Serious: Yes (Hospitalization)
  Sender: FDA-Public Use
  Company Number: US-PFIZER INC-2013107693

PATIENT
  Age: 55 Year
  Sex: Male
  Weight: 92.97 kg

DRUGS (4)
  1. CELEBREX [Suspect]
     Dosage: 200 MG, 1X/DAY
     Dates: start: 1971
  2. LEVOTHYROXINE [Concomitant]
     Dosage: 10 MG, 1X/DAY
  3. GABAPENTIN [Concomitant]
     Dosage: 10 MG, 1X/DAY
  4. SIMVASTATIN [Concomitant]
     Dosage: UNK

REACTIONS (2)
  - Gastrointestinal disorder [Unknown]
  - Scar [Unknown]
